FAERS Safety Report 5122840-6 (Version None)
Quarter: 2006Q4

REPORT INFORMATION
  Report Type: 
  Country: None (occurrence: None)
  Receive Date: 20061009
  Receipt Date: 20060927
  Transmission Date: 20070319
  Serious: Yes (Life-Threatening, Hospitalization)
  Sender: FDA-Public Use
  Company Number: PHHO2006NL16074

PATIENT
  Age: 56 Year
  Sex: Female
  Weight: 67 kg

DRUGS (2)
  1. TEGASEROD [Suspect]
     Indication: IRRITABLE BOWEL SYNDROME
     Route: 048
     Dates: end: 20060510
  2. DICLOFENAC [Concomitant]
     Indication: HIP SURGERY

REACTIONS (2)
  - MYOCARDIAL INFARCTION [None]
  - THROMBOSIS [None]
